FAERS Safety Report 20329026 (Version 1)
Quarter: 2022Q1

REPORT INFORMATION
  Report Type: Spontaneous
  Country: None (occurrence: CA)
  Receive Date: 20220112
  Receipt Date: 20220112
  Transmission Date: 20220423
  Serious: No
  Sender: FDA-Public Use
  Company Number: CA-Mission Pharmacal Company-2123867

PATIENT
  Age: 81 Year
  Sex: Female

DRUGS (4)
  1. UROCIT-K [Suspect]
     Active Substance: POTASSIUM CITRATE
     Route: 048
     Dates: start: 20170818, end: 20170821
  2. AMLODIPINE [Concomitant]
     Active Substance: AMLODIPINE BESYLATE
  3. HYDROCHLOROTHIAZIDE [Concomitant]
     Active Substance: HYDROCHLOROTHIAZIDE
  4. BETAHISTINE [Concomitant]
     Active Substance: BETAHISTINE

REACTIONS (2)
  - Melaena [Unknown]
  - Abnormal faeces [Unknown]
